APPROVED DRUG PRODUCT: GENTAMICIN SULFATE
Active Ingredient: GENTAMICIN SULFATE
Strength: EQ 0.1% BASE
Dosage Form/Route: CREAM;TOPICAL
Application: A062531 | Product #001
Applicant: FOUGERA PHARMACEUTICALS INC
Approved: Jul 5, 1984 | RLD: No | RS: No | Type: DISCN